FAERS Safety Report 9747637 (Version 1)
Quarter: 2013Q4

REPORT INFORMATION
  Report Type: Spontaneous
  Country: US (occurrence: None)
  Receive Date: 20131211
  Receipt Date: 20131211
  Transmission Date: 20140711
  Serious: Yes (Other)
  Sender: FDA-Public Use
  Company Number: None

PATIENT
  Age: 69 Year
  Sex: Female
  Weight: 83.92 kg

DRUGS (9)
  1. LIPITOR [Suspect]
     Indication: BLOOD CHOLESTEROL INCREASED
  2. METFORMIN [Concomitant]
  3. DILTIZEM [Concomitant]
  4. DYAZIDE [Concomitant]
  5. NEURONTIN [Concomitant]
  6. ASPIRIN [Concomitant]
  7. FISH OIL [Concomitant]
  8. CALCIUM [Concomitant]
  9. VITAMIN [Concomitant]

REACTIONS (4)
  - Musculoskeletal pain [None]
  - Fatigue [None]
  - Myalgia [None]
  - Muscle spasms [None]
